FAERS Safety Report 20144130 (Version 1)
Quarter: 2021Q4

REPORT INFORMATION
  Report Type: Spontaneous
  Country: US (occurrence: US)
  Receive Date: 20211203
  Receipt Date: 20211203
  Transmission Date: 20220303
  Serious: Yes (Other)
  Sender: FDA-Public Use
  Company Number: US-009507513-2112USA001311

PATIENT
  Age: 68 Year
  Sex: Male

DRUGS (1)
  1. KEYTRUDA [Suspect]
     Active Substance: PEMBROLIZUMAB
     Indication: Sarcoma
     Dosage: UNK

REACTIONS (3)
  - Immune-mediated pancreatitis [Unknown]
  - Immune-mediated dermatitis [Unknown]
  - Product use in unapproved indication [Unknown]
